FAERS Safety Report 16872378 (Version 4)
Quarter: 2019Q4

REPORT INFORMATION
  Report Type: Spontaneous
  Country: US (occurrence: US)
  Receive Date: 20191001
  Receipt Date: 20191106
  Transmission Date: 20200122
  Serious: Yes (Death, Hospitalization, Other)
  Sender: FDA-Public Use
  Company Number: US-SUN PHARMACEUTICAL INDUSTRIES LTD-2019R1-222436

PATIENT
  Age: 75 Year
  Sex: Female

DRUGS (4)
  1. VELETRI [Concomitant]
     Active Substance: EPOPROSTENOL
     Indication: PRODUCT USED FOR UNKNOWN INDICATION
     Dosage: UNK (38.5 NG/KG/MIN)
     Route: 065
  2. AMBRISENTAN [Suspect]
     Active Substance: AMBRISENTAN
     Indication: PRODUCT USED FOR UNKNOWN INDICATION
     Dosage: 10 MILLIGRAM, QD
     Route: 048
     Dates: start: 20190813
  3. ADCIRCA [Concomitant]
     Active Substance: TADALAFIL
     Indication: PRODUCT USED FOR UNKNOWN INDICATION
     Dosage: UNK
     Route: 065
  4. VELETRI [Concomitant]
     Active Substance: EPOPROSTENOL
     Dosage: UNK (30 NG/KG/MIN)
     Route: 065

REACTIONS (7)
  - Fluid overload [Unknown]
  - Dyspnoea [Unknown]
  - Peripheral swelling [Unknown]
  - Renal impairment [Unknown]
  - Anal incontinence [Unknown]
  - Death [Fatal]
  - Joint swelling [Unknown]

NARRATIVE: CASE EVENT DATE: 2019
